FAERS Safety Report 9015017 (Version 3)
Quarter: 2013Q1

REPORT INFORMATION
  Report Type: Spontaneous
  Country: US (occurrence: US)
  Receive Date: 20130116
  Receipt Date: 20130318
  Transmission Date: 20140127
  Serious: Yes (Hospitalization)
  Sender: FDA-Public Use
  Company Number: US-BRISTOL-MYERS SQUIBB COMPANY-17274317

PATIENT
  Age: 5 Decade
  Sex: Male

DRUGS (1)
  1. ONGLYZA TABS [Suspect]
     Indication: DIABETES MELLITUS
     Dosage: THERAPY TO APPROX.30MAY2012
     Route: 048
     Dates: start: 20120418, end: 20120530

REACTIONS (1)
  - Agranulocytosis [Unknown]
